FAERS Safety Report 8610761-3 (Version None)
Quarter: 2012Q3

REPORT INFORMATION
  Report Type: 
  Country: None (occurrence: None)
  Receive Date: 20120822
  Receipt Date: 20120802
  Transmission Date: 20120928
  Serious: Yes (Hospitalization, Disabling)
  Sender: FDA-Public Use
  Company Number: GB-EISAI INC-E7389-02806-SPO-GB

PATIENT
  Sex: Female
  Weight: 93 kg

DRUGS (1)
  1. HALAVEN [Suspect]
     Dosage: UNKNOWN
     Route: 041

REACTIONS (3)
  - DEHYDRATION [None]
  - BEDRIDDEN [None]
  - FATIGUE [None]
